FAERS Safety Report 8087501-2 (Version None)
Quarter: 2012Q1

REPORT INFORMATION
  Report Type: 
  Country: None (occurrence: None)
  Receive Date: 20120128
  Receipt Date: 20110523
  Transmission Date: 20120608
  Serious: No
  Sender: FDA-Public Use
  Company Number: US-ABBOTT-11P-163-0723028-00

PATIENT
  Age: 44 Year
  Sex: Female

DRUGS (4)
  1. HUMIRA [Suspect]
     Dosage: EVERY 3-4 WEEKS
     Dates: start: 20101201
  2. TRIAMCINOLONE [Concomitant]
     Indication: PSORIASIS
     Dates: start: 20100101
  3. HUMIRA [Suspect]
     Indication: PSORIASIS
     Dates: start: 20100801
  4. TYLENOL SINUS [Concomitant]
     Indication: SINUS DISORDER
     Dates: start: 20090101

REACTIONS (5)
  - ROAD TRAFFIC ACCIDENT [None]
  - CHEST DISCOMFORT [None]
  - INAPPROPRIATE SCHEDULE OF DRUG ADMINISTRATION [None]
  - PSORIASIS [None]
  - THERMAL BURN [None]
